FAERS Safety Report 10956272 (Version 1)
Quarter: 2015Q1

REPORT INFORMATION
  Report Type: Spontaneous
  Country: FR (occurrence: FR)
  Receive Date: 20150326
  Receipt Date: 20150326
  Transmission Date: 20150721
  Serious: Yes (Hospitalization, Other)
  Sender: FDA-Public Use
  Company Number: FR-SA-2015SA038135

PATIENT
  Age: 70 Year
  Sex: Female

DRUGS (4)
  1. IRINOTECAN [Concomitant]
     Active Substance: IRINOTECAN
  2. FOLINIC ACID [Concomitant]
     Active Substance: LEUCOVORIN
  3. FLUOROURACIL. [Concomitant]
     Active Substance: FLUOROURACIL
  4. ZALTRAP [Suspect]
     Active Substance: ZIV-AFLIBERCEPT
     Indication: PRODUCT USED FOR UNKNOWN INDICATION
     Route: 042

REACTIONS (3)
  - Bone marrow failure [Recovering/Resolving]
  - ECG signs of myocardial infarction [Recovering/Resolving]
  - Vaginal infection [Recovering/Resolving]
